FAERS Safety Report 5159432-9 (Version None)
Quarter: 2006Q4

REPORT INFORMATION
  Report Type: 
  Country: None (occurrence: None)
  Receive Date: 20061122
  Receipt Date: 20061122
  Transmission Date: 20070319
  Serious: No
  Sender: FDA-Public Use
  Company Number: None

PATIENT
  Age: 55 Year
  Sex: Male
  Weight: 79.3795 kg

DRUGS (1)
  1. CIPRO [Suspect]
     Indication: CYSTITIS
     Dosage: 250 MG EVERY 12 HOURS PO
     Route: 048
     Dates: start: 20060213, end: 20060215

REACTIONS (12)
  - AMNESIA [None]
  - ANXIETY [None]
  - ARTHRALGIA [None]
  - CHEST DISCOMFORT [None]
  - CHEST PAIN [None]
  - DEPRESSION [None]
  - DIZZINESS [None]
  - INSOMNIA [None]
  - MENTAL IMPAIRMENT [None]
  - PAIN [None]
  - PANIC ATTACK [None]
  - RESTLESS LEGS SYNDROME [None]
